FAERS Safety Report 6165331-6 (Version None)
Quarter: 2009Q2

REPORT INFORMATION
  Report Type: 
  Country: None (occurrence: None)
  Receive Date: 20090423
  Receipt Date: 20090416
  Transmission Date: 20091009
  Serious: No
  Sender: FDA-Public Use
  Company Number: US-B.I. PHARMACEUTICALS,INC./RIDGEFIELD-2009-BP-04883BP

PATIENT
  Sex: Female

DRUGS (11)
  1. ATROVENT HFA [Suspect]
     Indication: CHRONIC OBSTRUCTIVE PULMONARY DISEASE
     Dosage: 8PUF
     Route: 045
     Dates: start: 20090301
  2. LEVOTHYROXINE SODIUM [Concomitant]
     Indication: THYROID DISORDER
  3. MIRTAZAPINE [Concomitant]
     Indication: SLEEP DISORDER
  4. PLAVIX [Concomitant]
     Indication: ANTICOAGULANT THERAPY
  5. SERTRALINE HCL [Concomitant]
     Indication: NERVE INJURY
  6. FOLIC ACID [Concomitant]
     Indication: RHEUMATOID ARTHRITIS
  7. METHOTREXATE [Concomitant]
     Indication: RHEUMATOID ARTHRITIS
  8. CALCIUM + VIT D [Concomitant]
     Indication: OSTEOPOROSIS PROPHYLAXIS
  9. BONIVA [Concomitant]
     Indication: OSTEOPOROSIS PROPHYLAXIS
  10. ADVAIR HFA [Concomitant]
     Indication: CHRONIC OBSTRUCTIVE PULMONARY DISEASE
  11. XOPENEX [Concomitant]
     Indication: CHRONIC OBSTRUCTIVE PULMONARY DISEASE

REACTIONS (5)
  - DYSPHAGIA [None]
  - GLOSSODYNIA [None]
  - STOMATITIS [None]
  - SWOLLEN TONGUE [None]
  - TONGUE DISORDER [None]
